FAERS Safety Report 9394583 (Version 19)
Quarter: 2019Q4

REPORT INFORMATION
  Report Type: Report from Study
  Country: US (occurrence: US)
  Receive Date: 20130711
  Receipt Date: 20191105
  Transmission Date: 20200122
  Serious: Yes (Hospitalization, Other)
  Sender: FDA-Public Use
  Company Number: PHHY2013US063954

PATIENT
  Age: 46 Year
  Sex: Female
  Weight: 50 kg

DRUGS (14)
  1. BACLOFEN. [Concomitant]
     Active Substance: BACLOFEN
     Indication: MUSCLE SPASTICITY
     Dosage: 10 MG, TID
     Route: 048
     Dates: start: 20111111
  2. GILENYA [Suspect]
     Active Substance: FINGOLIMOD HYDROCHLORIDE
     Dosage: UNK, QD
     Route: 048
     Dates: start: 20121129
  3. DUONEB [Concomitant]
     Active Substance: ALBUTEROL SULFATE\IPRATROPIUM BROMIDE
     Indication: PROPHYLAXIS
     Route: 065
     Dates: start: 20130110, end: 20130117
  4. GILENYA [Suspect]
     Active Substance: FINGOLIMOD HYDROCHLORIDE
     Indication: MULTIPLE SCLEROSIS
     Dosage: UNK, QD
     Route: 048
     Dates: start: 20120301, end: 20121120
  5. COLACE [Concomitant]
     Active Substance: DOCUSATE SODIUM
     Indication: CONSTIPATION PROPHYLAXIS
     Route: 065
     Dates: start: 20130110, end: 20130117
  6. ZOLOFT [Concomitant]
     Active Substance: SERTRALINE HYDROCHLORIDE
     Indication: DEPRESSION
     Dosage: 50 MG, QD
     Route: 048
     Dates: start: 20111121, end: 201211
  7. TRANDATE [Concomitant]
     Active Substance: LABETALOL HYDROCHLORIDE
     Indication: BLOOD PRESSURE ABNORMAL
     Route: 065
     Dates: start: 20130110, end: 20130117
  8. ZANAFLEX [Concomitant]
     Active Substance: TIZANIDINE HYDROCHLORIDE
     Indication: MUSCLE SPASTICITY
     Dosage: 4 MG, BID
     Route: 048
     Dates: start: 200910
  9. LOVENOX [Concomitant]
     Active Substance: ENOXAPARIN SODIUM
     Indication: DEEP VEIN THROMBOSIS
     Route: 065
     Dates: start: 20130110, end: 20130117
  10. CATAPRES [Concomitant]
     Active Substance: CLONIDINE HYDROCHLORIDE
     Indication: BLOOD PRESSURE ABNORMAL
     Route: 065
     Dates: start: 20130110, end: 20130117
  11. DILANTIN [Suspect]
     Active Substance: PHENYTOIN
     Indication: PRODUCT USED FOR UNKNOWN INDICATION
     Route: 065
  12. MEROPENEM. [Concomitant]
     Active Substance: MEROPENEM
     Indication: INFECTION
     Route: 065
     Dates: start: 20130110, end: 20130117
  13. AMBIEN [Concomitant]
     Active Substance: ZOLPIDEM TARTRATE
     Indication: POOR QUALITY SLEEP
     Dosage: 5 MG, PRN
     Route: 048
     Dates: start: 20130101
  14. VASOTEC [Concomitant]
     Active Substance: ENALAPRIL MALEATE
     Indication: BLOOD PRESSURE ABNORMAL
     Route: 065
     Dates: start: 20130110, end: 20130117

REACTIONS (55)
  - Generalised tonic-clonic seizure [Recovered/Resolved]
  - Urinary tract infection [Recovered/Resolved]
  - Toxicity to various agents [Recovered/Resolved]
  - Atelectasis [Recovered/Resolved]
  - Hypophosphataemia [Recovered/Resolved]
  - Pyrexia [Recovered/Resolved]
  - Blood alkaline phosphatase increased [Recovered/Resolved]
  - Leukopenia [Recovered/Resolved]
  - Anticonvulsant drug level increased [Recovered/Resolved]
  - Urosepsis [Recovered/Resolved]
  - Culture urine positive [Unknown]
  - Red blood cells urine [Recovered/Resolved]
  - Dysphagia [Recovered/Resolved]
  - Hypokalaemia [Recovered/Resolved]
  - Blood sodium decreased [Unknown]
  - Blood sodium increased [Unknown]
  - Hyperglycaemia [Recovered/Resolved]
  - Hypomagnesaemia [Recovered/Resolved]
  - Hypernatraemia [Recovered/Resolved]
  - Dehydration [Recovered/Resolved]
  - White blood cells urine positive [Recovered/Resolved]
  - Dehydration [Recovered/Resolved]
  - Urine abnormality [Recovered/Resolved]
  - Protein urine [Recovered/Resolved]
  - Pneumonia aspiration [Recovered/Resolved]
  - Multiple sclerosis relapse [Recovered/Resolved]
  - Hypocapnia [Recovered/Resolved]
  - Blood creatinine decreased [Recovered/Resolved]
  - Respiratory alkalosis [Recovered/Resolved]
  - Herpes zoster [Recovered/Resolved]
  - Fungal infection [Recovered/Resolved]
  - Acute respiratory failure [Recovered/Resolved]
  - Pain [Unknown]
  - Nausea [Recovered/Resolved]
  - Vitamin B12 deficiency [Unknown]
  - Haematocrit decreased [Unknown]
  - Torticollis [Unknown]
  - Blood albumin decreased [Recovered/Resolved]
  - Blood urea increased [Recovered/Resolved]
  - Hypocalcaemia [Recovered/Resolved]
  - Urine ketone body present [Unknown]
  - Bacterial test positive [Unknown]
  - Urine leukocyte esterase [Recovered/Resolved]
  - Muscle twitching [Unknown]
  - Fluid overload [Recovered/Resolved]
  - Protein total decreased [Recovered/Resolved]
  - Hyperprolactinaemia [Recovered/Resolved]
  - Vomiting [Recovered/Resolved]
  - Hyperglycaemia [Recovered/Resolved]
  - Pyrexia [Recovered/Resolved]
  - Urobilinogen urine increased [Recovered/Resolved]
  - Urinary sediment present [Recovered/Resolved]
  - Pleural effusion [Recovered/Resolved]
  - Haemoglobin decreased [Unknown]
  - Hypoglycaemia [Recovered/Resolved]

NARRATIVE: CASE EVENT DATE: 20121120
